FAERS Safety Report 21163711 (Version 1)
Quarter: 2022Q3

REPORT INFORMATION
  Report Type: Report from Study
  Country: US (occurrence: US)
  Receive Date: 20220802
  Receipt Date: 20220802
  Transmission Date: 20221026
  Serious: Yes (Hospitalization, Other)
  Sender: FDA-Public Use
  Company Number: US-BRISTOL-MYERS SQUIBB COMPANY-2022-083724

PATIENT
  Age: 53 Year
  Sex: Male
  Weight: 65.86 kg

DRUGS (19)
  1. DASATINIB [Suspect]
     Active Substance: DASATINIB
     Indication: Pancreatic carcinoma
     Dosage: DAILY (DAY 1-14)
     Route: 048
     Dates: start: 20141216, end: 20150924
  2. FLUOROURACIL [Suspect]
     Active Substance: FLUOROURACIL
     Indication: Pancreatic carcinoma
     Route: 040
     Dates: start: 20141216, end: 20150924
  3. FLUOROURACIL [Suspect]
     Active Substance: FLUOROURACIL
     Route: 041
     Dates: start: 20141216, end: 20150924
  4. LEUCOVORIN CALCIUM [Suspect]
     Active Substance: LEUCOVORIN CALCIUM
     Indication: Pancreatic carcinoma
     Route: 042
     Dates: start: 20141216, end: 20150924
  5. OXALIPLATIN [Suspect]
     Active Substance: OXALIPLATIN
     Indication: Pancreatic carcinoma
     Route: 042
     Dates: start: 20141216, end: 20150924
  6. ENOXAPARIN [Concomitant]
     Active Substance: ENOXAPARIN
     Dosage: 80MG/0.8ML DAILY
  7. FENTANYL [Concomitant]
     Active Substance: FENTANYL
     Dosage: 100MCG PATCH EVERY 72 HOURS
  8. DIETARY SUPPLEMENT [Concomitant]
     Active Substance: DIETARY SUPPLEMENT
     Dosage: 2X DAILY
  9. ONDANSETRON [Concomitant]
     Active Substance: ONDANSETRON
     Dosage: 3X DAILY PRN
  10. OXYCODONE [Concomitant]
     Active Substance: OXYCODONE
     Dosage: 4X DAILY PRN
  11. LORAZEPAM [Concomitant]
     Active Substance: LORAZEPAM
     Dosage: 4 X DAILY PRN
  12. PROCHLORPERAZINE [Concomitant]
     Active Substance: PROCHLORPERAZINE
  13. DOCUSATE SODIUM [Concomitant]
     Active Substance: DOCUSATE SODIUM
     Dosage: 3 TIMES DAILY.
  14. POLYETHYLENE GLYCOLS [Concomitant]
     Active Substance: POLYETHYLENE GLYCOLS
     Dosage: 1PCK 2X DAILY
  15. CYCLOBENZAPRINE [Concomitant]
     Active Substance: CYCLOBENZAPRINE
     Dosage: 3 X DAILY
  16. BENZONATATE [Concomitant]
     Active Substance: BENZONATATE
     Dosage: 4X DAILY PRN
  17. BISACODYL [Concomitant]
     Active Substance: BISACODYL
     Dosage: DAILY
  18. GABAPENTIN [Concomitant]
     Active Substance: GABAPENTIN
     Dosage: DAILY
  19. PANTOPRAZOLE [Concomitant]
     Active Substance: PANTOPRAZOLE
     Dosage: DAILY

REACTIONS (1)
  - Small intestinal obstruction [Unknown]

NARRATIVE: CASE EVENT DATE: 20150827
